FAERS Safety Report 15297467 (Version 3)
Quarter: 2018Q4

REPORT INFORMATION
  Report Type: Spontaneous
  Country: DE (occurrence: DE)
  Receive Date: 20180820
  Receipt Date: 20181228
  Transmission Date: 20190204
  Serious: Yes (Other)
  Sender: FDA-Public Use
  Company Number: PHHY2018DE073282

PATIENT
  Age: 29 Year
  Sex: Male

DRUGS (21)
  1. RISPERIDONE. [Suspect]
     Active Substance: RISPERIDONE
     Indication: MENTAL DISORDER
     Dosage: 1 MG, UNK (RANK 1: 0.5-1.5 MG RANK 3: 3-4 MG)
     Route: 048
  2. RISPERIDONE. [Suspect]
     Active Substance: RISPERIDONE
     Indication: DRUG DEPENDENCE
     Dosage: 6 MG, UNK (RANK 1: 0.5-1.5 MG RANK 3: 3-4 MG)
     Route: 048
  3. PIPAMPERONE [Suspect]
     Active Substance: PIPAMPERONE
     Dosage: 60 MG, QD
     Route: 048
     Dates: start: 20170518
  4. RISPERIDONE. [Suspect]
     Active Substance: RISPERIDONE
     Dosage: DOSAGE FORM: UNSPECIFIED
     Route: 048
  5. PIPAMPERONE [Suspect]
     Active Substance: PIPAMPERONE
     Dosage: 100 MG, QD
     Route: 048
     Dates: start: 20170513, end: 20170514
  6. PIPAMPERONE [Suspect]
     Active Substance: PIPAMPERONE
     Dosage: 80 MG, QD
     Route: 048
     Dates: start: 20170515, end: 20170517
  7. PIPAMPERONE [Suspect]
     Active Substance: PIPAMPERONE
     Dosage: 40 MG, QD
     Route: 048
     Dates: start: 20170519
  8. MIRTAZAPINE. [Suspect]
     Active Substance: MIRTAZAPINE
     Dosage: 45 MG, QD
     Route: 048
     Dates: start: 20170515, end: 20170517
  9. MIRTAZAPINE. [Suspect]
     Active Substance: MIRTAZAPINE
     Dosage: 30 MG, QD
     Route: 048
     Dates: start: 20170518, end: 20170608
  10. MIRTAZAPINE. [Suspect]
     Active Substance: MIRTAZAPINE
     Dosage: 15 MG, QD
     Route: 048
     Dates: start: 20170609, end: 20170611
  11. MIRTAZAPINE. [Suspect]
     Active Substance: MIRTAZAPINE
     Dosage: DOSAGE FORM: UNKNOWN
     Route: 048
     Dates: start: 20170609, end: 20170611
  12. RISPERIDONE. [Suspect]
     Active Substance: RISPERIDONE
     Indication: ABNORMAL BEHAVIOUR
     Dosage: UNK (RANK 1: 0.5-1.5 MG RANK 3: 3-4 MG)
     Route: 048
  13. RISPERIDONE. [Suspect]
     Active Substance: RISPERIDONE
     Dosage: DOSAGE FORM: UNSPECIFIED, 3-4 MG
     Route: 048
  14. MIRTAZAPINE. [Suspect]
     Active Substance: MIRTAZAPINE
     Indication: PRODUCT USED FOR UNKNOWN INDICATION
     Dosage: 30 MG, QD
     Route: 048
     Dates: start: 20170331, end: 20170514
  15. PIPAMPERONE [Suspect]
     Active Substance: PIPAMPERONE
     Indication: PRODUCT USED FOR UNKNOWN INDICATION
     Dosage: 120 MG, QD
     Route: 048
     Dates: start: 20170503, end: 20170512
  16. MIRTAZAPINE. [Suspect]
     Active Substance: MIRTAZAPINE
     Dosage: DOSAGE FORM: UNKNOWN
     Route: 048
     Dates: start: 20170518, end: 20170608
  17. MIRTAZAPINE. [Suspect]
     Active Substance: MIRTAZAPINE
     Dosage: DOSAGE FORM: UNKNOWN
     Route: 048
     Dates: start: 20170515, end: 20170517
  18. RISPERIDONE. [Suspect]
     Active Substance: RISPERIDONE
     Dosage: DOSAGE FORM: UNSPECIFIED, 0.5-1 MG
     Route: 048
  19. RISPERIDONE. [Suspect]
     Active Substance: RISPERIDONE
     Dosage: DOSAGE FORM: UNSPECIFIED
     Route: 048
  20. MIRTAZAPINE. [Suspect]
     Active Substance: MIRTAZAPINE
     Dosage: DOSAGE FORM: UNKNOWN
     Route: 048
     Dates: start: 20170331, end: 20170514
  21. LORAZEPAM. [Concomitant]
     Active Substance: LORAZEPAM
     Indication: PRODUCT USED FOR UNKNOWN INDICATION
     Dosage: UNK, QD (0.5 - 3 MG)
     Route: 048
     Dates: start: 20170424, end: 20170604

REACTIONS (3)
  - Off label use [Unknown]
  - Hepatic enzyme increased [Recovered/Resolved]
  - Product use in unapproved indication [Unknown]

NARRATIVE: CASE EVENT DATE: 20170412
